FAERS Safety Report 9580414 (Version 1)
Quarter: 2013Q4

REPORT INFORMATION
  Report Type: Spontaneous
  Country: US (occurrence: None)
  Receive Date: 20131001
  Receipt Date: 20131001
  Transmission Date: 20140711
  Serious: Yes (Hospitalization)
  Sender: FDA-Public Use
  Company Number: None

PATIENT
  Age: 82 Year
  Sex: Male
  Weight: 71.8 kg

DRUGS (2)
  1. AMIODARONE [Suspect]
     Indication: ATRIAL FIBRILLATION
     Route: 048
     Dates: start: 20130924, end: 20130929
  2. DIGOXIN [Suspect]
     Indication: ARRHYTHMIA
     Route: 048
     Dates: start: 20130924, end: 20130929

REACTIONS (1)
  - Bradycardia [None]
